FAERS Safety Report 10685749 (Version 2)
Quarter: 2014Q4

REPORT INFORMATION
  Report Type: Spontaneous
  Country: US (occurrence: US)
  Receive Date: 20141231
  Receipt Date: 20141231
  Transmission Date: 20150529
  Serious: Yes (Hospitalization, Disabling)
  Sender: FDA-Public Use
  Company Number: US-009507513-1204USA04480

PATIENT
  Sex: Male
  Weight: 82.86 kg

DRUGS (3)
  1. PROPECIA [Suspect]
     Active Substance: FINASTERIDE
     Indication: ALOPECIA
     Dosage: 1 MG, UNK
     Route: 048
     Dates: start: 2000
  2. FINASTERIDE. [Suspect]
     Active Substance: FINASTERIDE
     Indication: ALOPECIA
     Dosage: 5 MG, DAILY
     Route: 048
     Dates: start: 2010, end: 2012
  3. PROSCAR [Suspect]
     Active Substance: FINASTERIDE
     Indication: BENIGN PROSTATIC HYPERPLASIA
     Dosage: 5 MG, UNK
     Route: 048
     Dates: start: 2010, end: 2012

REACTIONS (43)
  - Intervertebral disc displacement [Not Recovered/Not Resolved]
  - Hypercholesterolaemia [Unknown]
  - Muscle spasms [Unknown]
  - Astigmatism [Unknown]
  - Libido decreased [Not Recovered/Not Resolved]
  - Ejaculation disorder [Not Recovered/Not Resolved]
  - Decreased appetite [Unknown]
  - Type 2 diabetes mellitus [Unknown]
  - Vitamin D deficiency [Unknown]
  - Hyalosis asteroid [Unknown]
  - Depression [Not Recovered/Not Resolved]
  - Prostatic specific antigen increased [Unknown]
  - Diarrhoea [Unknown]
  - Cognitive disorder [Not Recovered/Not Resolved]
  - Drug administration error [Unknown]
  - Overdose [Unknown]
  - Essential hypertension [Unknown]
  - Renal disorder [Unknown]
  - Acne [Unknown]
  - Joint injury [Unknown]
  - Colonoscopy [Unknown]
  - Back disorder [Not Recovered/Not Resolved]
  - Presbyopia [Unknown]
  - Ejaculation failure [Not Recovered/Not Resolved]
  - Sexual dysfunction [Not Recovered/Not Resolved]
  - Rosacea [Unknown]
  - Actinic keratosis [Unknown]
  - Asthenia [Unknown]
  - Anxiety [Not Recovered/Not Resolved]
  - Erectile dysfunction [Not Recovered/Not Resolved]
  - Infection [Unknown]
  - Benign prostatic hyperplasia [Unknown]
  - Abnormal loss of weight [Unknown]
  - Lumbar radiculopathy [Unknown]
  - Hypothyroidism [Unknown]
  - Back pain [Unknown]
  - Tendonitis [Unknown]
  - Ligament sprain [Unknown]
  - Haematochezia [Unknown]
  - Haemorrhoids [Unknown]
  - Rotator cuff syndrome [Unknown]
  - Arthralgia [Unknown]
  - Corneal scar [Unknown]

NARRATIVE: CASE EVENT DATE: 2000
